FAERS Safety Report 8223979-9 (Version None)
Quarter: 2012Q1

REPORT INFORMATION
  Report Type: 
  Country: None (occurrence: None)
  Receive Date: 20120321
  Receipt Date: 20120315
  Transmission Date: 20120608
  Serious: Yes (Hospitalization)
  Sender: FDA-Public Use
  Company Number: PHHY2011DE098159

PATIENT
  Age: 71 Year
  Sex: Female
  Weight: 60 kg

DRUGS (1)
  1. FEMARA [Suspect]
     Indication: BREAST CANCER
     Dosage: 2.5 MG/ DAY
     Route: 048
     Dates: start: 20070701, end: 20111107

REACTIONS (3)
  - HEPATIC ENZYME INCREASED [None]
  - ABDOMINAL PAIN [None]
  - PANCREATITIS [None]
